FAERS Safety Report 11896833 (Version 1)
Quarter: 2016Q1

REPORT INFORMATION
  Report Type: Spontaneous
  Country: None (occurrence: US)
  Receive Date: 20160107
  Receipt Date: 20160107
  Transmission Date: 20160526
  Serious: No
  Sender: FDA-Public Use
  Company Number: US-ALLERGAN-1524068US

PATIENT
  Sex: Female

DRUGS (3)
  1. ACZONE [Suspect]
     Active Substance: DAPSONE
     Indication: ACNE
     Dosage: UNK
     Route: 061
  2. DOXYCYCLINE. [Concomitant]
     Active Substance: DOXYCYCLINE
     Dosage: 50 MG, BID
  3. ACZONE [Suspect]
     Active Substance: DAPSONE
     Indication: ACNE
     Dosage: UNK UNK, BID
     Route: 061
     Dates: start: 20150923

REACTIONS (4)
  - Rash [Recovered/Resolved]
  - Rash erythematous [Recovering/Resolving]
  - Acne [Recovering/Resolving]
  - Scar [Unknown]
